FAERS Safety Report 5605036-0 (Version None)
Quarter: 2008Q1

REPORT INFORMATION
  Report Type: 
  Country: None (occurrence: None)
  Receive Date: 20080111
  Receipt Date: 20070702
  Transmission Date: 20080703
  Serious: Yes (Other)
  Sender: FDA-Public Use
  Company Number: HQWYE254820JUL04

PATIENT
  Age: 62 Year
  Sex: Female
  Weight: 65.38 kg

DRUGS (4)
  1. PREMPRO [Suspect]
     Indication: DRUG USE FOR UNKNOWN INDICATION
  2. PREMARIN [Suspect]
  3. PREMPRO [Suspect]
  4. PROVERA [Suspect]
     Indication: DRUG USE FOR UNKNOWN INDICATION

REACTIONS (1)
  - BREAST CANCER [None]
